FAERS Safety Report 7469615-0 (Version None)
Quarter: 2011Q2

REPORT INFORMATION
  Report Type: 
  Country: None (occurrence: None)
  Receive Date: 20110510
  Receipt Date: 20110421
  Transmission Date: 20111010
  Serious: No
  Sender: FDA-Public Use
  Company Number: US-B.I. PHARMACEUTICALS,INC./RIDGEFIELD-2011-BP-06682BP

PATIENT
  Age: 82 Year
  Sex: Female

DRUGS (8)
  1. CARDIZEM [Concomitant]
     Dosage: 360 MG
  2. SYNTHROID [Concomitant]
  3. ZOLPIDEM TARTRATE [Concomitant]
     Dosage: 20 MG
  4. CELEBREX [Concomitant]
     Dosage: 200 MG
  5. TRIAMTERENE HCZ [Concomitant]
  6. DIGOXIN [Concomitant]
     Dosage: 150 MG
  7. NEXIUM [Concomitant]
     Dosage: 40 MG
  8. PRADAXA [Suspect]
     Indication: ATRIAL FIBRILLATION
     Dosage: 300 MG
     Route: 048
     Dates: start: 20100101

REACTIONS (2)
  - FLATULENCE [None]
  - ABDOMINAL DISCOMFORT [None]
